FAERS Safety Report 7597208-3 (Version None)
Quarter: 2011Q3

REPORT INFORMATION
  Report Type: 
  Country: None (occurrence: None)
  Receive Date: 20110708
  Receipt Date: 20100916
  Transmission Date: 20111222
  Serious: No
  Sender: FDA-Public Use
  Company Number: US-GLAXOSMITHKLINE-A0881484A

PATIENT
  Age: 59 Year
  Sex: Female

DRUGS (3)
  1. ATROVENT [Concomitant]
  2. FLOVENT [Suspect]
     Indication: ASTHMA
     Dosage: 1PUFF PER DAY
     Route: 055
     Dates: start: 20000101
  3. FLUTICASONE PROPIONATE [Concomitant]

REACTIONS (3)
  - INCORRECT DOSE ADMINISTERED [None]
  - DYSPNOEA [None]
  - PRODUCT QUALITY ISSUE [None]
